FAERS Safety Report 6581493-0 (Version None)
Quarter: 2010Q1

REPORT INFORMATION
  Report Type: 
  Country: None (occurrence: None)
  Receive Date: 20100215
  Receipt Date: 20100212
  Transmission Date: 20100710
  Serious: Yes (Life-Threatening, Hospitalization)
  Sender: FDA-Public Use
  Company Number: B0631937A

PATIENT
  Sex: Male

DRUGS (7)
  1. AUGMENTIN [Suspect]
     Route: 048
     Dates: start: 20091224, end: 20091224
  2. FUROSEMIDE [Concomitant]
     Route: 048
  3. DIFFU K [Concomitant]
     Route: 048
  4. PERMIXON [Concomitant]
     Dosage: 160MG UNKNOWN
     Route: 048
  5. KARDEGIC [Concomitant]
     Route: 048
  6. NEBILOX [Concomitant]
     Route: 048
  7. MODOPAR [Concomitant]
     Route: 048

REACTIONS (6)
  - ANAPHYLACTIC SHOCK [None]
  - HYPOTENSION [None]
  - PYREXIA [None]
  - RASH [None]
  - TACHYCARDIA [None]
  - VOMITING [None]
